FAERS Safety Report 4814661-6 (Version None)
Quarter: 2005Q4

REPORT INFORMATION
  Report Type: 
  Country: None (occurrence: None)
  Receive Date: 20051028
  Receipt Date: 20051020
  Transmission Date: 20060501
  Serious: Yes (Other)
  Sender: FDA-Public Use
  Company Number: US-GLAXOSMITHKLINE-A0578959A

PATIENT
  Sex: Female

DRUGS (4)
  1. CITRUCEL REGULAR SUSPENSION [Suspect]
     Indication: CONSTIPATION
     Route: 048
     Dates: start: 20040101
  2. PROGESTERONE [Concomitant]
  3. ANTIBIOTIC UNSPECIFIED [Concomitant]
  4. UNSPECIFIED MEDICATIONS [Concomitant]

REACTIONS (3)
  - ABDOMINAL PAIN [None]
  - INTESTINAL OBSTRUCTION [None]
  - RECTAL TENESMUS [None]
